FAERS Safety Report 23133078 (Version 1)
Quarter: 2023Q4

REPORT INFORMATION
  Report Type: Spontaneous
  Country: IN (occurrence: IN)
  Receive Date: 20231101
  Receipt Date: 20231101
  Transmission Date: 20240109
  Serious: Yes (Death, Hospitalization)
  Sender: FDA-Public Use
  Company Number: IN-002147023-NVSC2023IN233344

PATIENT
  Age: 11 Month
  Sex: Male

DRUGS (1)
  1. ZOLGENSMA [Suspect]
     Active Substance: ONASEMNOGENE ABEPARVOVEC-XIOI
     Indication: Spinal muscular atrophy
     Dosage: UNK, ONCE/SINGLE
     Route: 042
     Dates: start: 20210624, end: 20210624

REACTIONS (3)
  - Pneumonia aspiration [Fatal]
  - Cough [Fatal]
  - Dysphagia [Fatal]

NARRATIVE: CASE EVENT DATE: 20210701
